FAERS Safety Report 11596168 (Version 1)
Quarter: 2015Q4

REPORT INFORMATION
  Report Type: Spontaneous
  Country: US (occurrence: None)
  Receive Date: 20151005
  Receipt Date: 20151005
  Transmission Date: 20160304
  Serious: Yes (Disabling)
  Sender: FDA-Public Use
  Company Number: None

PATIENT
  Sex: Male

DRUGS (2)
  1. AFINITOR [Suspect]
     Active Substance: EVEROLIMUS
     Dates: start: 20150630, end: 20150824
  2. INLYTA [Suspect]
     Active Substance: AXITINIB
     Route: 048
     Dates: start: 20140905, end: 20150521

REACTIONS (4)
  - Seizure [None]
  - Blindness [None]
  - Cognitive disorder [None]
  - Hemiplegia [None]
